FAERS Safety Report 4452888-6 (Version None)
Quarter: 2004Q3

REPORT INFORMATION
  Report Type: 
  Country: None (occurrence: None)
  Receive Date: 20040916
  Receipt Date: 20040908
  Transmission Date: 20050211
  Serious: Yes (Hospitalization)
  Sender: FDA-Public Use
  Company Number: HQWYE966109SEP04

PATIENT
  Sex: Female

DRUGS (1)
  1. CORDARONE [Suspect]
     Dosage: ORAL
     Route: 048
     Dates: end: 20040101

REACTIONS (3)
  - GENERAL PHYSICAL HEALTH DETERIORATION [None]
  - PNEUMONIA [None]
  - PULMONARY TOXICITY [None]
